FAERS Safety Report 6885271-4 (Version None)
Quarter: 2010Q3

REPORT INFORMATION
  Report Type: 
  Country: None (occurrence: None)
  Receive Date: 20100729
  Receipt Date: 20100729
  Transmission Date: 20110219
  Serious: Yes (Other)
  Sender: FDA-Public Use
  Company Number: None

PATIENT
  Age: 62 Year
  Sex: Female
  Weight: 64.8644 kg

DRUGS (1)
  1. ACTONEL [Suspect]
     Indication: OSTEOPOROSIS
     Dosage: 1 TABLET ONCE A WEEK
     Dates: start: 20100627, end: 20100704

REACTIONS (3)
  - ARTHRALGIA [None]
  - BACK PAIN [None]
  - MYALGIA [None]
